FAERS Safety Report 9535013 (Version 3)
Quarter: 2013Q4

REPORT INFORMATION
  Report Type: Report from Study
  Country: CA (occurrence: CA)
  Receive Date: 20130918
  Receipt Date: 20131126
  Transmission Date: 20140711
  Serious: Yes (Death, Life-Threatening, Hospitalization, Disabling)
  Sender: FDA-Public Use
  Company Number: CA-EISAI INC-E7389-02923-CLI-CA

PATIENT
  Age: 62 Year
  Sex: Female
  Weight: 61 kg

DRUGS (9)
  1. E7389 (BOLD) [Suspect]
     Indication: BREAST CANCER METASTATIC
     Route: 041
     Dates: start: 20120808, end: 20121015
  2. FLUCONAZOLE [Concomitant]
     Indication: MUCOSAL INFLAMMATION
     Route: 042
     Dates: start: 20120816, end: 20120905
  3. ACETAMINOPHEN [Concomitant]
     Indication: PAIN
     Route: 048
     Dates: start: 20120822, end: 20120829
  4. DALTEPARIN [Concomitant]
     Indication: THROMBOSIS PROPHYLAXIS
     Route: 058
     Dates: start: 20120816, end: 20121122
  5. DOCUSATE SODIUM [Concomitant]
     Indication: CONSTIPATION
     Route: 048
     Dates: start: 20120823, end: 20121004
  6. PEPCID [Concomitant]
     Indication: DYSPEPSIA
     Route: 042
     Dates: start: 20120820, end: 20120828
  7. FILGRASTIM [Concomitant]
     Indication: COLONY STIMULATING FACTOR PROPHYLAXIS
     Route: 058
     Dates: start: 20120817, end: 20120904
  8. LACTULOSE [Concomitant]
     Indication: CONSTIPATION
     Route: 048
     Dates: start: 20120823, end: 20120930
  9. MAGNESIUM HYDROXIDE [Concomitant]
     Indication: CONSTIPATION
     Dosage: UNKNOWN
     Dates: start: 20120820, end: 20120828

REACTIONS (6)
  - Death [Fatal]
  - Mucosal inflammation [Recovered/Resolved]
  - Urinary tract infection [Recovered/Resolved]
  - Febrile neutropenia [Recovered/Resolved]
  - Pleural effusion [Not Recovered/Not Resolved]
  - Subdural haematoma [Recovered/Resolved]
